FAERS Safety Report 6903044-0 (Version None)
Quarter: 2010Q3

REPORT INFORMATION
  Report Type: 
  Country: None (occurrence: None)
  Receive Date: 20100803
  Receipt Date: 20080812
  Transmission Date: 20110219
  Serious: No
  Sender: FDA-Public Use
  Company Number: US-PFIZER INC-2008067817

PATIENT
  Sex: Female
  Weight: 109 kg

DRUGS (12)
  1. LYRICA [Suspect]
     Indication: FIBROMYALGIA
     Dates: start: 20070101
  2. DICLOFENAC [Concomitant]
  3. LISINOPRIL [Concomitant]
  4. METOPROLOL [Concomitant]
  5. TOPIRAMATE [Concomitant]
  6. METFORMIN HCL [Concomitant]
  7. OMEPRAZOLE [Concomitant]
  8. FLUVOXAMINE MALEATE [Concomitant]
  9. METHOCARBAMOL [Concomitant]
  10. LORAZEPAM [Concomitant]
  11. CHLORPHENAMINE [Concomitant]
  12. ABILIFY [Concomitant]

REACTIONS (3)
  - BLOOD CALCIUM DECREASED [None]
  - SPEECH DISORDER [None]
  - VITAMIN D DECREASED [None]
